FAERS Safety Report 8798387 (Version 3)
Quarter: 2012Q4

REPORT INFORMATION
  Report Type: 
  Country: US (occurrence: US)
  Receive Date: 20120920
  Receipt Date: 20121001
  Transmission Date: 20130627
  Serious: Yes (Other)
  Sender: FDA-Public Use
  Company Number: US-ASTRAZENECA-2012SE72082

PATIENT
  Age: 55 Year
  Sex: Female

DRUGS (2)
  1. PRILOSEC [Suspect]
     Route: 048
  2. NEXIUM [Suspect]
     Route: 048

REACTIONS (6)
  - Throat cancer [Unknown]
  - Gastrooesophageal reflux disease [Unknown]
  - Increased upper airway secretion [Unknown]
  - Retching [Unknown]
  - Intentional drug misuse [Unknown]
  - Drug ineffective [Unknown]
